FAERS Safety Report 26195867 (Version 1)
Quarter: 2025Q4

REPORT INFORMATION
  Report Type: Spontaneous
  Country: CN (occurrence: CN)
  Receive Date: 20251224
  Receipt Date: 20251224
  Transmission Date: 20260117
  Serious: Yes (Other)
  Sender: ROCHE
  Company Number: CN-ROCHE-10000467429

PATIENT
  Age: 8 Year
  Sex: Male

DRUGS (3)
  1. BALOXAVIR MARBOXIL [Suspect]
     Active Substance: BALOXAVIR MARBOXIL
     Indication: Influenza
  2. MOTRIN [Concomitant]
     Active Substance: IBUPROFEN
     Indication: Influenza
  3. TYLENOL [Concomitant]
     Active Substance: ACETAMINOPHEN
     Indication: Influenza

REACTIONS (1)
  - Hyperpyrexia [Not Recovered/Not Resolved]
